FAERS Safety Report 4382235-X (Version None)
Quarter: 2004Q2

REPORT INFORMATION
  Report Type: 
  Country: None (occurrence: None)
  Receive Date: 20040616
  Receipt Date: 20040603
  Transmission Date: 20050107
  Serious: Yes (Hospitalization)
  Sender: FDA-Public Use
  Company Number: 2004-UK-00222UK

PATIENT
  Age: 58 Year
  Sex: Male

DRUGS (3)
  1. NEVIRAPINE (EU/1/97/055/001) (NEVIRAPINE) (TA) (NEVIRAPINE) [Suspect]
     Indication: HIV INFECTION
     Dosage: 200 MG FOR TWO WEEKS (200 MG) PO; 400 MG (200 MG) PO
     Route: 048
     Dates: start: 20040207, end: 20040220
  2. NEVIRAPINE (EU/1/97/055/001) (NEVIRAPINE) (TA) (NEVIRAPINE) [Suspect]
     Indication: HIV INFECTION
     Dosage: 200 MG FOR TWO WEEKS (200 MG) PO; 400 MG (200 MG) PO
     Route: 048
     Dates: start: 20040221, end: 20040301
  3. COMBIVIR [Concomitant]

REACTIONS (11)
  - ALANINE AMINOTRANSFERASE INCREASED [None]
  - BLOOD ALBUMIN DECREASED [None]
  - BLOOD ALKALINE PHOSPHATASE INCREASED [None]
  - BLOOD AMYLASE INCREASED [None]
  - BLOOD BILIRUBIN INCREASED [None]
  - C-REACTIVE PROTEIN INCREASED [None]
  - EYE SWELLING [None]
  - GAMMA-GLUTAMYLTRANSFERASE INCREASED [None]
  - HAEMOGLOBIN DECREASED [None]
  - INFLUENZA LIKE ILLNESS [None]
  - STEVENS-JOHNSON SYNDROME [None]
